FAERS Safety Report 9951259 (Version 3)
Quarter: 2014Q2

REPORT INFORMATION
  Report Type: Spontaneous
  Country: JP (occurrence: JP)
  Receive Date: 20140304
  Receipt Date: 20140410
  Transmission Date: 20141212
  Serious: Yes (Other)
  Sender: FDA-Public Use
  Company Number: PHHY2014JP024328

PATIENT
  Sex: 0

DRUGS (1)
  1. SANDOSTATIN [Suspect]
     Dosage: UNK UKN, UNK
     Route: 058

REACTIONS (4)
  - Disease progression [Unknown]
  - Drug ineffective [Unknown]
  - Incorrect drug administration rate [Unknown]
  - Nausea [Unknown]
